FAERS Safety Report 4304492-8 (Version None)
Quarter: 2004Q1

REPORT INFORMATION
  Report Type: 
  Country: None (occurrence: None)
  Receive Date: 20040224
  Receipt Date: 20040212
  Transmission Date: 20041129
  Serious: Yes (Hospitalization)
  Sender: FDA-Public Use
  Company Number: 2004001116

PATIENT
  Age: 70 Year
  Sex: Female

DRUGS (19)
  1. LIPITOR [Suspect]
     Indication: HYPERLIPIDAEMIA
     Dosage: 5 MG (DAILY), ORAL
     Route: 048
     Dates: start: 20030709, end: 20031215
  2. CLARITHROMYCIN [Suspect]
     Indication: ILL-DEFINED DISORDER
     Dosage: 400 MG (DAILY), ORAL
     Route: 048
     Dates: start: 20031205, end: 20031215
  3. ALPRAZOLAM [Suspect]
     Indication: NEUROLOGICAL SYMPTOM
     Dosage: 0.4 MG (DAILY), ORAL
     Route: 048
     Dates: start: 20030926, end: 20031215
  4. B-KOMPLEX ^LECIVA^ (PYRIDOXINE HYDROCHLORIDE, THIAMINE HYDROCHLORIDE, [Suspect]
     Indication: ILL-DEFINED DISORDER
     Dosage: ORAL
     Route: 048
     Dates: start: 20031125, end: 20031215
  5. FOMINOBEN HYDROCHLORIDE (FOMINOBEN HYDROCHLORIDE) [Suspect]
     Indication: ILL-DEFINED DISORDER
     Dosage: 480MG (DAILY), ORAL
     Route: 048
     Dates: start: 20031125, end: 20031215
  6. AMBROXOL HYDROCHLORIDE (AMBROXOL HYDROCHLORIDE) [Suspect]
     Indication: ILL-DEFINED DISORDER
     Dosage: 45 (DAILY), ORAL
     Route: 048
     Dates: start: 20031125, end: 20031215
  7. BUFFERIN [Concomitant]
  8. NITERNDIPINE (NITERNDIPINE) [Concomitant]
  9. CONJUGATED ESTROGENS [Concomitant]
  10. ETIZOLAM (ETIZOLAM) [Concomitant]
  11. IFENPRODIL TARTRATE (IFENPRODIL TARTRATE) [Concomitant]
  12. PAROXETINE HCL [Concomitant]
  13. TIPEPIDINE HIBENZATE (TIPEPIDINE HIBENZATE) [Concomitant]
  14. IBUPROFEN [Concomitant]
  15. EPHEDRA (EPHEDRA) [Concomitant]
  16. ALL OTHER THEARPEUTIC PRODUCTS [Concomitant]
  17. SALIPARA CODEINE (CODEINE PHOSPHATE, PRUNUN SP. CORTEX EXTRACT) [Concomitant]
  18. LEVOTHYROXINE SODIUM [Concomitant]
  19. SHOUSEIRYUUTOU (HERBAL EXTRACTS NOS) [Concomitant]

REACTIONS (8)
  - ALANINE AMINOTRANSFERASE INCREASED [None]
  - ASPARTATE AMINOTRANSFERASE INCREASED [None]
  - DIFFICULTY IN WALKING [None]
  - FACE OEDEMA [None]
  - FEELING ABNORMAL [None]
  - HEPATIC FUNCTION ABNORMAL [None]
  - HYPERVENTILATION [None]
  - RASH [None]
